FAERS Safety Report 6912918-6 (Version None)
Quarter: 2010Q3

REPORT INFORMATION
  Report Type: 
  Country: None (occurrence: None)
  Receive Date: 20100806
  Receipt Date: 20090320
  Transmission Date: 20110219
  Serious: No
  Sender: FDA-Public Use
  Company Number: US-PFIZER INC-2009157677

PATIENT
  Sex: Male

DRUGS (2)
  1. GLUCOTROL [Suspect]
  2. METFORMIN [Concomitant]

REACTIONS (3)
  - BLOOD INSULIN DECREASED [None]
  - DRUG INEFFECTIVE [None]
  - LIVER DISORDER [None]
